FAERS Safety Report 23675586 (Version 2)
Quarter: 2024Q2

REPORT INFORMATION
  Report Type: Spontaneous
  Country: US (occurrence: US)
  Receive Date: 20240327
  Receipt Date: 20240404
  Transmission Date: 20240716
  Serious: Yes (Other)
  Sender: FDA-Public Use
  Company Number: US-ALKEM LABORATORIES LIMITED-US-ALKEM-2024-05265

PATIENT
  Age: 56 Year
  Sex: Male

DRUGS (1)
  1. TACROLIMUS [Interacting]
     Active Substance: TACROLIMUS
     Indication: Immunosuppressant drug therapy
     Dosage: 0.5 MILLIGRAM, BID PO
     Route: 048

REACTIONS (7)
  - Food interaction [Unknown]
  - Nephropathy toxic [Recovering/Resolving]
  - Hyperkalaemia [Unknown]
  - Scrotal oedema [Unknown]
  - Abdominal distension [Unknown]
  - Drug level increased [Unknown]
  - Oedema peripheral [Unknown]
